FAERS Safety Report 4870621-0 (Version None)
Quarter: 2005Q4

REPORT INFORMATION
  Report Type: 
  Country: None (occurrence: None)
  Receive Date: 20051228
  Receipt Date: 20051213
  Transmission Date: 20060501
  Serious: Yes (Death, Hospitalization)
  Sender: FDA-Public Use
  Company Number: FI200511003174

PATIENT
  Age: 74 Year
  Sex: Female

DRUGS (6)
  1. ZYPREXA [Suspect]
     Indication: SCHIZOPHRENIA
  2. ORSANIL (THIORIDAZINE HYDROCHLORIDE) [Concomitant]
  3. SEROQUEL (QUETIAPINE FUMARTE) [Concomitant]
  4. DIAZEPAM [Concomitant]
  5. AKINETON   /AUS/ (BIPERIDEN HYDROCHLORIDE) [Concomitant]
  6. CITALOPRAM HYDROBROMIDE [Concomitant]

REACTIONS (15)
  - BEDRIDDEN [None]
  - BLOOD CREATINE PHOSPHOKINASE INCREASED [None]
  - BLOOD GLUCOSE INCREASED [None]
  - CATATONIA [None]
  - CLOSTRIDIAL INFECTION [None]
  - DIABETES MELLITUS [None]
  - ENTERITIS [None]
  - GENERAL PHYSICAL HEALTH DETERIORATION [None]
  - MUSCLE RIGIDITY [None]
  - NEUROLEPTIC MALIGNANT SYNDROME [None]
  - PNEUMONIA [None]
  - RENAL FAILURE [None]
  - THERAPY NON-RESPONDER [None]
  - URINE OUTPUT DECREASED [None]
  - VASCULITIS [None]
